FAERS Safety Report 9056346 (Version 1)
Quarter: 2013Q1

REPORT INFORMATION
  Report Type: Report from Study
  Country: FR (occurrence: FR)
  Receive Date: 20130204
  Receipt Date: 20130204
  Transmission Date: 20140127
  Serious: Yes (Death, Other)
  Sender: FDA-Public Use
  Company Number: FR-ROCHE-1180871

PATIENT
  Sex: Male

DRUGS (34)
  1. RANIBIZUMAB [Suspect]
     Indication: AGE-RELATED MACULAR DEGENERATION
     Route: 050
     Dates: start: 20070827
  2. RANIBIZUMAB [Suspect]
     Route: 050
     Dates: start: 20080626
  3. RANIBIZUMAB [Suspect]
     Route: 050
     Dates: start: 20081124
  4. RANIBIZUMAB [Suspect]
     Route: 050
     Dates: start: 20090114
  5. RANIBIZUMAB [Suspect]
     Route: 050
     Dates: start: 20090206
  6. RANIBIZUMAB [Suspect]
     Route: 050
     Dates: start: 20090217
  7. RANIBIZUMAB [Suspect]
     Route: 050
     Dates: start: 20090324
  8. RANIBIZUMAB [Suspect]
     Route: 050
     Dates: start: 20090513
  9. RANIBIZUMAB [Suspect]
     Route: 050
     Dates: start: 20090629
  10. RANIBIZUMAB [Suspect]
     Route: 050
     Dates: start: 20090730
  11. RANIBIZUMAB [Suspect]
     Route: 050
     Dates: start: 20090810
  12. RANIBIZUMAB [Suspect]
     Route: 050
     Dates: start: 20090921
  13. RANIBIZUMAB [Suspect]
     Route: 050
     Dates: start: 20091103
  14. RANIBIZUMAB [Suspect]
     Route: 050
     Dates: start: 20091215
  15. RANIBIZUMAB [Suspect]
     Route: 050
     Dates: start: 20100126
  16. RANIBIZUMAB [Suspect]
     Route: 050
     Dates: start: 20100311
  17. RANIBIZUMAB [Suspect]
     Route: 050
     Dates: start: 20100406
  18. RANIBIZUMAB [Suspect]
     Route: 050
     Dates: start: 20100512
  19. RANIBIZUMAB [Suspect]
     Route: 050
     Dates: start: 20100615
  20. RANIBIZUMAB [Suspect]
     Route: 050
     Dates: start: 20100727
  21. RANIBIZUMAB [Suspect]
     Route: 050
     Dates: start: 20100907
  22. RANIBIZUMAB [Suspect]
     Route: 050
     Dates: start: 20101021
  23. RANIBIZUMAB [Suspect]
     Route: 050
     Dates: start: 20101030
  24. RANIBIZUMAB [Suspect]
     Route: 050
     Dates: start: 20110111
  25. RANIBIZUMAB [Suspect]
     Route: 050
     Dates: start: 20110222
  26. RANIBIZUMAB [Suspect]
     Route: 050
     Dates: start: 20110322
  27. RANIBIZUMAB [Suspect]
     Route: 050
     Dates: start: 20110421
  28. RANIBIZUMAB [Suspect]
     Route: 050
     Dates: start: 20110517
  29. RANIBIZUMAB [Suspect]
     Route: 050
     Dates: start: 20110621
  30. RANIBIZUMAB [Suspect]
     Route: 050
     Dates: start: 20110727
  31. RANIBIZUMAB [Suspect]
     Route: 050
     Dates: start: 20110822
  32. RANIBIZUMAB [Suspect]
     Route: 050
     Dates: start: 20110920
  33. RANIBIZUMAB [Suspect]
     Route: 050
     Dates: start: 20111028
  34. RANIBIZUMAB [Suspect]
     Route: 050
     Dates: start: 20090810

REACTIONS (2)
  - Prostate cancer metastatic [Fatal]
  - Inappropriate schedule of drug administration [Unknown]
